FAERS Safety Report 7367184-7 (Version None)
Quarter: 2011Q1

REPORT INFORMATION
  Report Type: 
  Country: None (occurrence: None)
  Receive Date: 20110322
  Receipt Date: 20110311
  Transmission Date: 20110831
  Serious: Yes (Other)
  Sender: FDA-Public Use
  Company Number: CN-JNJFOC-20110306197

PATIENT
  Age: 44 Year
  Sex: Female

DRUGS (2)
  1. RISPERDAL [Suspect]
     Indication: SCHIZOPHRENIA
     Dosage: 1-4MG/DAY
     Route: 048
  2. RISPERDAL [Suspect]
     Dosage: 1-4MG/DAY
     Route: 048

REACTIONS (5)
  - SUICIDAL IDEATION [None]
  - FEELING ABNORMAL [None]
  - ABDOMINAL PAIN [None]
  - TREATMENT NONCOMPLIANCE [None]
  - ASTHENIA [None]
